FAERS Safety Report 8313851-8 (Version None)
Quarter: 2012Q2

REPORT INFORMATION
  Report Type: 
  Country: None (occurrence: None)
  Receive Date: 20120426
  Receipt Date: 20120417
  Transmission Date: 20120825
  Serious: Yes (Hospitalization, Other)
  Sender: FDA-Public Use
  Company Number: US-ASTRAZENECA-2011SE62089

PATIENT
  Age: 63 Year
  Sex: Female
  Weight: 127 kg

DRUGS (14)
  1. ONGLYZA [Concomitant]
  2. VITAMIN TAB [Concomitant]
  3. PRILOSEC [Suspect]
  4. LASIX [Concomitant]
  5. ALLOPURINOL [Concomitant]
  6. ZYLOPRIM [Concomitant]
  7. NEXIUM [Suspect]
     Indication: GASTROOESOPHAGEAL REFLUX DISEASE
     Route: 048
  8. VICON FORTE [Concomitant]
  9. SIMVASTATIN [Concomitant]
  10. TOMA [Concomitant]
  11. PLAVIX [Concomitant]
  12. AMBIEN [Concomitant]
  13. CYMBALTA [Concomitant]
  14. ZOCOR [Concomitant]

REACTIONS (5)
  - POOR PERIPHERAL CIRCULATION [None]
  - HEART RATE IRREGULAR [None]
  - DIABETES MELLITUS [None]
  - MUSCULOSKELETAL DISORDER [None]
  - OFF LABEL USE [None]
